FAERS Safety Report 19567158 (Version 4)
Quarter: 2021Q3

REPORT INFORMATION
  Report Type: Spontaneous
  Country: US (occurrence: US)
  Receive Date: 20210714
  Receipt Date: 20210909
  Transmission Date: 20211014
  Serious: No
  Sender: FDA-Public Use
  Company Number: US-LUNDBECK-DKLU3035631

PATIENT
  Age: 52 Year
  Sex: Female

DRUGS (1)
  1. VYEPTI [Suspect]
     Active Substance: EPTINEZUMAB-JJMR
     Indication: MIGRAINE
     Route: 041
     Dates: start: 20210709

REACTIONS (7)
  - Peripheral swelling [Not Recovered/Not Resolved]
  - Paranasal sinus discomfort [Unknown]
  - Hypertension [Unknown]
  - Hypoaesthesia [Recovered/Resolved]
  - Memory impairment [Unknown]
  - Paraesthesia [Recovered/Resolved]
  - Migraine [Not Recovered/Not Resolved]

NARRATIVE: CASE EVENT DATE: 20210709
